FAERS Safety Report 23241044 (Version 2)
Quarter: 2024Q1

REPORT INFORMATION
  Report Type: Spontaneous
  Country: US (occurrence: US)
  Receive Date: 20231129
  Receipt Date: 20240117
  Transmission Date: 20240410
  Serious: Yes (Hospitalization)
  Sender: FDA-Public Use
  Company Number: US-MYLANLABS-2023M1124154

PATIENT
  Age: 65 Year
  Sex: Male

DRUGS (5)
  1. HYDROCORTISONE [Suspect]
     Active Substance: HYDROCORTISONE
     Indication: Hypopituitarism
     Dosage: UNK
     Route: 065
  2. HYDROCORTISONE [Suspect]
     Active Substance: HYDROCORTISONE
     Dosage: UNK (DOSE INCREASED)
     Route: 065
  3. GLUCOTROL XL [Suspect]
     Active Substance: GLIPIZIDE
     Indication: Product used for unknown indication
     Dosage: UNK
     Route: 065
  4. LEVOTHYROXINE [Concomitant]
     Active Substance: LEVOTHYROXINE\LEVOTHYROXINE SODIUM
     Indication: Hypopituitarism
     Dosage: UNK
     Route: 065
  5. TESTOSTERONE [Concomitant]
     Active Substance: TESTOSTERONE
     Indication: Hypopituitarism
     Dosage: UNK
     Route: 065

REACTIONS (1)
  - Product dose omission in error [Recovering/Resolving]
